FAERS Safety Report 6392132-6 (Version None)
Quarter: 2009Q4

REPORT INFORMATION
  Report Type: 
  Country: None (occurrence: None)
  Receive Date: 20091007
  Receipt Date: 20091001
  Transmission Date: 20100525
  Serious: Yes (Hospitalization)
  Sender: FDA-Public Use
  Company Number: FR-NAPPMUNDI-GBR-2009-0005638

PATIENT
  Sex: Female

DRUGS (2)
  1. OXYCONTIN [Suspect]
     Indication: POST-TRAUMATIC HEADACHE
     Dosage: 50 MG, BID
     Route: 048
  2. MOVICOL                            /01749801/ [Concomitant]
     Indication: CONSTIPATION PROPHYLAXIS

REACTIONS (3)
  - ILEUS [None]
  - PNEUMONIA ASPIRATION [None]
  - VOMITING PROJECTILE [None]
